FAERS Safety Report 4425074-3 (Version None)
Quarter: 2004Q3

REPORT INFORMATION
  Report Type: 
  Country: None (occurrence: None)
  Receive Date: 20040813
  Receipt Date: 20040803
  Transmission Date: 20050211
  Serious: Yes (Other)
  Sender: FDA-Public Use
  Company Number: FR-BRISTOL-MYERS SQUIBB COMPANY-12660882

PATIENT
  Sex: Female

DRUGS (3)
  1. REYATAZ [Suspect]
     Indication: HIV INFECTION
     Route: 048
     Dates: start: 20040712, end: 20040730
  2. NORVIR [Concomitant]
     Indication: HIV INFECTION
     Dates: end: 20040730
  3. CRESTOR [Concomitant]
     Indication: LIPIDS ABNORMAL
     Dates: start: 20040601, end: 20040730

REACTIONS (4)
  - HAEMOLYSIS [None]
  - HYPERBILIRUBINAEMIA [None]
  - JAUNDICE [None]
  - PYREXIA [None]
